FAERS Safety Report 9155135 (Version 2)
Quarter: 2013Q1

REPORT INFORMATION
  Report Type: Spontaneous
  Country: JP (occurrence: JP)
  Receive Date: 20130311
  Receipt Date: 20130321
  Transmission Date: 20140127
  Serious: Yes (Hospitalization)
  Sender: FDA-Public Use
  Company Number: JP-ROCHE-1197260

PATIENT
  Age: 4 Year
  Sex: Male
  Weight: 20.1 kg

DRUGS (10)
  1. TAMIFLU [Suspect]
     Indication: INFLUENZA
     Route: 048
     Dates: start: 20130203, end: 20130207
  2. ACTEMRA [Suspect]
     Indication: JUVENILE IDIOPATHIC ARTHRITIS
     Dosage: DOSAGE IS UNCERTAIN
     Route: 041
  3. ASVERIN (TIPEPIDINE HIBENZATE) [Suspect]
     Indication: INFLUENZA
     Route: 048
     Dates: start: 20130203
  4. MUCODYNE [Concomitant]
     Route: 048
     Dates: start: 20130203
  5. TRANSAMIN [Concomitant]
     Route: 048
     Dates: start: 20130203
  6. PREDONINE [Concomitant]
     Route: 065
     Dates: start: 20121130, end: 20121218
  7. PREDONINE [Concomitant]
     Route: 065
     Dates: start: 20120219, end: 20121230
  8. PREDONINE [Concomitant]
     Route: 065
     Dates: start: 20121231, end: 20130128
  9. PREDONINE [Concomitant]
     Route: 065
     Dates: start: 20130129, end: 20130211
  10. PREDONINE [Concomitant]
     Route: 065
     Dates: start: 20130212

REACTIONS (2)
  - Influenza [Recovered/Resolved]
  - Chromaturia [Recovered/Resolved]
